FAERS Safety Report 25875268 (Version 1)
Quarter: 2025Q4

REPORT INFORMATION
  Report Type: Spontaneous
  Country: US (occurrence: US)
  Receive Date: 20251003
  Receipt Date: 20251003
  Transmission Date: 20260118
  Serious: No
  Sender: ALEXION PHARMACEUTICALS
  Company Number: US-AstraZeneca-CH-00962309A

PATIENT
  Sex: Male

DRUGS (1)
  1. FARXIGA [Suspect]
     Active Substance: DAPAGLIFLOZIN PROPANEDIOL
     Indication: Chronic kidney disease
     Dosage: 10 MILLIGRAM, QD

REACTIONS (2)
  - Urinary tract infection [Recovered/Resolved]
  - Abdominal pain [Recovered/Resolved]
